FAERS Safety Report 9372052 (Version 1)
Quarter: 2013Q2

REPORT INFORMATION
  Report Type: Spontaneous
  Country: DE (occurrence: None)
  Receive Date: 20130624
  Receipt Date: 20130624
  Transmission Date: 20140414
  Serious: Yes (Hospitalization, Other)
  Sender: FDA-Public Use
  Company Number: USA/GER/13/0030063

PATIENT
  Age: 60 Year
  Sex: Male

DRUGS (1)
  1. RAMIPRIL (RAMIPRIL) [Suspect]
     Indication: HYPERTENSION
     Dosage: STOPPED

REACTIONS (9)
  - Hypertension [None]
  - Anaphylactic reaction [None]
  - Angioedema [None]
  - Disseminated intravascular coagulation [None]
  - Fibrinolysis [None]
  - Shock [None]
  - Multi-organ failure [None]
  - Capillary leak syndrome [None]
  - Rubber sensitivity [None]
